FAERS Safety Report 22660331 (Version 4)
Quarter: 2024Q1

REPORT INFORMATION
  Report Type: Report from Study
  Country: US (occurrence: US)
  Receive Date: 20230630
  Receipt Date: 20240322
  Transmission Date: 20240410
  Serious: Yes (Hospitalization, Other)
  Sender: FDA-Public Use
  Company Number: US-JAZZ PHARMACEUTICALS-2023-US-013512

PATIENT
  Age: 63 Year
  Sex: Male

DRUGS (11)
  1. EPIDIOLEX [Suspect]
     Active Substance: CANNABIDIOL
     Indication: Lennox-Gastaut syndrome
     Dosage: 5.8 MILLILITER, BID
     Route: 048
     Dates: start: 20190421
  2. EPIDIOLEX [Suspect]
     Active Substance: CANNABIDIOL
     Dosage: 5.8 MILLILITER, BID
     Route: 048
     Dates: start: 20190521
  3. EPIDIOLEX [Suspect]
     Active Substance: CANNABIDIOL
     Dosage: 5.8 MILLILITER, BID
     Route: 048
     Dates: start: 20190519
  4. EPIDIOLEX [Suspect]
     Active Substance: CANNABIDIOL
     Dosage: 5.8 MILLILITER, BID
     Route: 048
     Dates: start: 20190521
  5. EPIDIOLEX [Suspect]
     Active Substance: CANNABIDIOL
     Dosage: 5.8 MILLILITER, BID
     Route: 048
     Dates: start: 20190522
  6. ZONISAMIDE [Concomitant]
     Active Substance: ZONISAMIDE
     Indication: Product used for unknown indication
  7. ZOLOFT [Concomitant]
     Active Substance: SERTRALINE HYDROCHLORIDE
     Indication: Product used for unknown indication
  8. TEGRETOL [Concomitant]
     Active Substance: CARBAMAZEPINE
     Indication: Product used for unknown indication
  9. PHENOBARBITAL [Concomitant]
     Active Substance: PHENOBARBITAL
     Indication: Product used for unknown indication
  10. PANTOPRAZOLE [Concomitant]
     Active Substance: PANTOPRAZOLE
     Indication: Product used for unknown indication
  11. LAMOTRIGINE [Concomitant]
     Active Substance: LAMOTRIGINE
     Indication: Product used for unknown indication

REACTIONS (8)
  - Seizure [Recovered/Resolved]
  - Seizure [Unknown]
  - Vertigo [Unknown]
  - COVID-19 [Unknown]
  - Pneumonia [Unknown]
  - Parkinson^s disease [Unknown]
  - Seizure [Not Recovered/Not Resolved]
  - Seizure [Unknown]

NARRATIVE: CASE EVENT DATE: 20230618
